FAERS Safety Report 6192703-6 (Version None)
Quarter: 2009Q2

REPORT INFORMATION
  Report Type: 
  Country: None (occurrence: None)
  Receive Date: 20090518
  Receipt Date: 20090507
  Transmission Date: 20091009
  Serious: Yes (Hospitalization)
  Sender: FDA-Public Use
  Company Number: BE-ROCHE-632107

PATIENT
  Sex: Male
  Weight: 77 kg

DRUGS (2)
  1. CAPECITABINE [Suspect]
     Indication: COLON CANCER STAGE III
     Route: 048
     Dates: start: 20090325, end: 20090414
  2. ELOXATIN [Suspect]
     Indication: COLON CANCER STAGE III
     Route: 042
     Dates: start: 20090325, end: 20090414

REACTIONS (1)
  - INTESTINAL OBSTRUCTION [None]
